FAERS Safety Report 10750932 (Version 1)
Quarter: 2015Q1

REPORT INFORMATION
  Report Type: Spontaneous
  Country: US (occurrence: US)
  Receive Date: 20150130
  Receipt Date: 20150130
  Transmission Date: 20150721
  Serious: Yes (Other)
  Sender: FDA-Public Use
  Company Number: US-CELGENEUS-USA-2015013468

PATIENT
  Sex: Male

DRUGS (1)
  1. REVLIMID [Suspect]
     Active Substance: LENALIDOMIDE
     Indication: PLASMA CELL MYELOMA
     Dosage: 25 MILLIGRAM
     Route: 048
     Dates: start: 201104

REACTIONS (8)
  - Disorder of orbit [Unknown]
  - Pathological fracture [Unknown]
  - Vitreous detachment [Unknown]
  - Obesity [Unknown]
  - Chronic obstructive pulmonary disease [Unknown]
  - Retinal vascular occlusion [Unknown]
  - Cataract nuclear [Unknown]
  - Pain in extremity [Unknown]
